FAERS Safety Report 23913997 (Version 1)
Quarter: 2024Q2

REPORT INFORMATION
  Report Type: Spontaneous
  Country: JP (occurrence: JP)
  Receive Date: 20240529
  Receipt Date: 20240529
  Transmission Date: 20240716
  Serious: Yes (Death, Other)
  Sender: FDA-Public Use
  Company Number: JP-UNITED THERAPEUTICS-UNT-2024-015969

PATIENT
  Age: 30 Year
  Sex: Female

DRUGS (1)
  1. REMODULIN [Suspect]
     Active Substance: TREPROSTINIL
     Indication: Product used for unknown indication
     Dosage: UNK, CONTINUING
     Route: 058
     Dates: start: 202306

REACTIONS (2)
  - Cardio-respiratory arrest [Fatal]
  - Brain death [Fatal]

NARRATIVE: CASE EVENT DATE: 20240521
